FAERS Safety Report 6997186-1 (Version None)
Quarter: 2010Q3

REPORT INFORMATION
  Report Type: 
  Country: None (occurrence: None)
  Receive Date: 20100918
  Receipt Date: 20090917
  Transmission Date: 20110219
  Serious: No
  Sender: FDA-Public Use
  Company Number: US-WYE-H11076109

PATIENT
  Sex: Female
  Weight: 58.11 kg

DRUGS (3)
  1. PRISTIQ [Suspect]
     Indication: DEPRESSION
     Route: 048
     Dates: start: 20080101
  2. PRISTIQ [Suspect]
     Dosage: ^SPLITTING A TABLET IN HALF^
     Route: 048
  3. ADVAIR DISKUS 100/50 [Concomitant]

REACTIONS (3)
  - BLOOD PRESSURE INCREASED [None]
  - INTENTIONAL DRUG MISUSE [None]
  - NIGHT SWEATS [None]
